FAERS Safety Report 16262897 (Version 1)
Quarter: 2019Q2

REPORT INFORMATION
  Report Type: Spontaneous
  Country: GB (occurrence: GB)
  Receive Date: 20190502
  Receipt Date: 20190502
  Transmission Date: 20190711
  Serious: Yes (Hospitalization)
  Sender: FDA-Public Use
  Company Number: GB-TEVA-2019-GB-1044730

PATIENT
  Age: 77 Year
  Sex: Male

DRUGS (12)
  1. NEBIVOLOL. [Concomitant]
     Active Substance: NEBIVOLOL
  2. ADCAL-D3 [Concomitant]
     Active Substance: CALCIUM CARBONATE\CHOLECALCIFEROL
     Dosage: 750MG/200UNIT
  3. CLOPIDOGREL [Concomitant]
     Active Substance: CLOPIDOGREL BISULFATE
  4. LANSOPRAZOLE. [Concomitant]
     Active Substance: LANSOPRAZOLE
  5. COLECALCIFEROL [Concomitant]
     Active Substance: CHOLECALCIFEROL
  6. DIGOXIN. [Concomitant]
     Active Substance: DIGOXIN
  7. ALLOPURINOL. [Concomitant]
     Active Substance: ALLOPURINOL
  8. RAMIPRIL. [Concomitant]
     Active Substance: RAMIPRIL
  9. BUMETANIDE. [Concomitant]
     Active Substance: BUMETANIDE
  10. IMIPRAMINE [Concomitant]
     Active Substance: IMIPRAMINE
  11. WARFARIN [Suspect]
     Active Substance: WARFARIN
  12. ATORVASTATIN [Concomitant]
     Active Substance: ATORVASTATIN

REACTIONS (3)
  - Dizziness [Unknown]
  - Liver function test abnormal [Unknown]
  - Epistaxis [Recovered/Resolved]
